FAERS Safety Report 7888697-5 (Version None)
Quarter: 2011Q4

REPORT INFORMATION
  Report Type: 
  Country: None (occurrence: None)
  Receive Date: 20111103
  Receipt Date: 20111025
  Transmission Date: 20120403
  Serious: Yes (Death, Hospitalization)
  Sender: FDA-Public Use
  Company Number: ES-ROCHE-724808

PATIENT
  Sex: Female
  Weight: 87 kg

DRUGS (9)
  1. AVASTIN [Suspect]
     Indication: COLORECTAL CANCER
     Route: 042
  2. BISOPROLOL FUMARATE [Concomitant]
  3. ANASMA [Concomitant]
  4. IRINOTECAN HYDROCHLORIDE [Suspect]
     Indication: COLORECTAL CANCER
     Dosage: DATE OF LAST DOSE PRIOR TO SAE: 14 JUNE 2010.
     Route: 042
  5. OMEPRAZOLE [Concomitant]
  6. LORMETAZEPAM [Concomitant]
  7. XELODA [Suspect]
     Indication: COLORECTAL CANCER
     Dosage: DATE OF LAST DOSE PRIOR TO SAE: 24 JUNE 2010
     Route: 048
  8. ASPIRIN [Concomitant]
  9. NITRODUR II [Concomitant]
     Dosage: REPORTED AS NITRODUR

REACTIONS (1)
  - PULMONARY EMBOLISM [None]
